FAERS Safety Report 21318283 (Version 1)
Quarter: 2022Q3

REPORT INFORMATION
  Report Type: Spontaneous
  Country: US (occurrence: US)
  Receive Date: 20220911
  Receipt Date: 20220911
  Transmission Date: 20221026
  Serious: No
  Sender: FDA-Public Use
  Company Number: US-SA-SAC20220829000925

PATIENT
  Age: 38 Year
  Sex: Male
  Weight: 73.48 kg

DRUGS (9)
  1. DUPIXENT [Suspect]
     Active Substance: DUPILUMAB
     Indication: Asthma
     Route: 058
     Dates: start: 20220805
  2. FINASTERIDE [Concomitant]
     Active Substance: FINASTERIDE
  3. MULTAMIN [VITAMINS NOS] [Concomitant]
     Dosage: MULTI-VITAMIN DAILY
  4. TYLENOL [Concomitant]
     Active Substance: ACETAMINOPHEN
  5. XHANCE [Concomitant]
     Active Substance: FLUTICASONE PROPIONATE
  6. NEOMYCIN;POLYMYXIN [Concomitant]
  7. PREDNISONE [Concomitant]
     Active Substance: PREDNISONE
  8. ACETAMINOPHEN\HYDROCODONE [Concomitant]
     Active Substance: ACETAMINOPHEN\HYDROCODONE
  9. CEPHALEXIN [Concomitant]
     Active Substance: CEPHALEXIN

REACTIONS (1)
  - Urticaria [Recovered/Resolved]

NARRATIVE: CASE EVENT DATE: 20220817
